FAERS Safety Report 25671726 (Version 6)
Quarter: 2025Q4

REPORT INFORMATION
  Report Type: Spontaneous
  Country: AR (occurrence: AR)
  Receive Date: 20250812
  Receipt Date: 20251230
  Transmission Date: 20260117
  Serious: Yes (Other)
  Sender: MYLAN
  Company Number: AR-MYLANLABS-2025M1068302

PATIENT
  Age: 20 Year
  Sex: Male

DRUGS (1)
  1. CLOZAPINE [Suspect]
     Active Substance: CLOZAPINE
     Indication: Product used for unknown indication
     Dosage: UNK

REACTIONS (7)
  - Leukopenia [Recovered/Resolved]
  - Neutropenia [Recovered/Resolved]
  - Red blood cell count decreased [Recovering/Resolving]
  - Haematocrit decreased [Not Recovered/Not Resolved]
  - Haemoglobin decreased [Not Recovered/Not Resolved]
  - Mean cell haemoglobin decreased [Unknown]
  - Mean cell haemoglobin concentration decreased [Unknown]

NARRATIVE: CASE EVENT DATE: 20250807
